FAERS Safety Report 4405459-1 (Version None)
Quarter: 2004Q3

REPORT INFORMATION
  Report Type: 
  Country: None (occurrence: None)
  Receive Date: 20040723
  Receipt Date: 20030902
  Transmission Date: 20050211
  Serious: No
  Sender: FDA-Public Use
  Company Number: US-GLAXOSMITHKLINE-A0424326A

PATIENT
  Age: 78 Year
  Sex: Female

DRUGS (3)
  1. AVANDIA [Suspect]
     Dosage: 1 PER DAY
     Route: 048
     Dates: start: 20020101, end: 20030801
  2. GLYNASE [Concomitant]
  3. ZANTAC [Concomitant]

REACTIONS (1)
  - OEDEMA PERIPHERAL [None]
